FAERS Safety Report 5420920-9 (Version None)
Quarter: 2007Q3

REPORT INFORMATION
  Report Type: 
  Country: None (occurrence: None)
  Receive Date: 20070817
  Receipt Date: 20070817
  Transmission Date: 20080115
  Serious: Yes (Other)
  Sender: FDA-Public Use
  Company Number: None

PATIENT
  Sex: Female
  Weight: 71.36 kg

DRUGS (1)
  1. DIVALPROEX SODIUM [Suspect]
     Indication: SCHIZOPHRENIA, PARANOID TYPE
     Dosage: 1500 MG
     Dates: start: 20070625, end: 20070803

REACTIONS (2)
  - FATIGUE [None]
  - LETHARGY [None]
